FAERS Safety Report 9680711 (Version 1)
Quarter: 2013Q4

REPORT INFORMATION
  Report Type: Report from Study
  Country: US (occurrence: US)
  Receive Date: 20131111
  Receipt Date: 20131111
  Transmission Date: 20140711
  Serious: Yes (Other)
  Sender: FDA-Public Use
  Company Number: US-JNJFOC-20131101976

PATIENT
  Sex: 0

DRUGS (3)
  1. REMICADE [Suspect]
     Indication: ANKYLOSING SPONDYLITIS
     Route: 042
     Dates: start: 2002
  2. PRED FORTE [Concomitant]
     Dosage: DAILY
     Route: 065
  3. COMBIGAN [Concomitant]
     Dosage: DAILY
     Route: 065

REACTIONS (2)
  - Glaucoma [Unknown]
  - Supraventricular tachycardia [Recovered/Resolved]
